FAERS Safety Report 9749961 (Version 2)
Quarter: 2014Q1

REPORT INFORMATION
  Report Type: Report from Study
  Country: US (occurrence: US)
  Receive Date: 20131212
  Receipt Date: 20140113
  Transmission Date: 20141002
  Serious: Yes (Hospitalization)
  Sender: FDA-Public Use
  Company Number: US-PURDUE-USA-2013-0109427

PATIENT
  Sex: Male

DRUGS (1)
  1. OXY CR TAB [Suspect]
     Indication: BACK DISORDER
     Dosage: 80 MG, TID
     Route: 048
     Dates: start: 20131109

REACTIONS (1)
  - Osteomyelitis [Unknown]
